FAERS Safety Report 10056374 (Version 2)
Quarter: 2014Q3

REPORT INFORMATION
  Report Type: Spontaneous
  Country: IT (occurrence: None)
  Receive Date: 20140401
  Receipt Date: 20140730
  Transmission Date: 20150326
  Serious: Yes (Hospitalization)
  Sender: FDA-Public Use
  Company Number: AUR-APL-2014-03956

PATIENT
  Age: 81 Year
  Sex: Female

DRUGS (15)
  1. METFORMIN [Suspect]
     Active Substance: METFORMIN HYDROCHLORIDE
     Indication: DIABETES MELLITUS
     Route: 048
     Dates: start: 20090314, end: 20140314
  2. PANTORC (PANTOPRAZOLE SODIUM SESQUIHYDRATE) [Concomitant]
  3. LYRICA [Concomitant]
     Active Substance: PREGABALIN
  4. LANTUS [Suspect]
     Active Substance: INSULIN GLARGINE
     Indication: DIABETES MELLITUS
     Route: 058
     Dates: start: 20110314, end: 20110314
  5. PLAVIX (CLOPIDOGREL BISULFATE [Concomitant]
  6. APROVEL (IRBESARTAN) [Concomitant]
  7. LASIX [Concomitant]
     Active Substance: FUROSEMIDE
  8. MINITRAN (GLYCERYL TRINITRATE) [Concomitant]
  9. PERIPLUM (PINAVERIUM BROMIDE) [Concomitant]
  10. EUTIROX (LEVOTHYROXINE SODIUM) [Concomitant]
     Active Substance: LEVOTHYROXINE SODIUM
  11. IVABRADINE (IVABRADINE) [Concomitant]
  12. ESIDREX (HYDROCHLOROTHIAZIDE) [Concomitant]
  13. ATORVASTATIN (ATORVASTATIN) [Concomitant]
     Active Substance: ATORVASTATIN
  14. GLICLAZIDE [Suspect]
     Active Substance: GLICLAZIDE
     Indication: DIABETES MELLITUS
     Route: 048
     Dates: start: 20090314, end: 20140314
  15. ZYLORIC (ALLOPURINOL) [Concomitant]
     Active Substance: ALLOPURINOL

REACTIONS (2)
  - Syncope [None]
  - Hypoglycaemia [None]

NARRATIVE: CASE EVENT DATE: 20140314
